FAERS Safety Report 6829766-8 (Version None)
Quarter: 2010Q3

REPORT INFORMATION
  Report Type: 
  Country: None (occurrence: None)
  Receive Date: 20100709
  Receipt Date: 20070921
  Transmission Date: 20110219
  Serious: Yes (Other)
  Sender: FDA-Public Use
  Company Number: US-PFIZER INC-2007011449

PATIENT
  Sex: Male
  Weight: 90.7 kg

DRUGS (7)
  1. CHANTIX [Suspect]
     Indication: EX-TOBACCO USER
     Dates: start: 20070206
  2. CARBATROL [Concomitant]
     Indication: EPILEPSY
  3. CELONTIN [Concomitant]
     Indication: EPILEPSY
  4. PERCOCET [Concomitant]
  5. PROTONIX [Concomitant]
  6. SOMA [Concomitant]
  7. OXYCONTIN [Concomitant]

REACTIONS (5)
  - BLOOD PRESSURE INCREASED [None]
  - CHEST PAIN [None]
  - FEELING ABNORMAL [None]
  - PALPITATIONS [None]
  - PLEURITIC PAIN [None]
